FAERS Safety Report 5050739-2 (Version None)
Quarter: 2006Q3

REPORT INFORMATION
  Report Type: 
  Country: None (occurrence: None)
  Receive Date: 20060707
  Receipt Date: 20060621
  Transmission Date: 20061208
  Serious: Yes (Life-Threatening, Hospitalization)
  Sender: FDA-Public Use
  Company Number: S06-FRA-02620-01

PATIENT
  Age: 21 Year
  Sex: Female

DRUGS (11)
  1. CITALOPRAM HYDROBROMIDE [Suspect]
     Dosage: 10 MG QD PO
     Route: 048
     Dates: end: 20060315
  2. RISPERDAL [Suspect]
     Dosage: 1 MG BID PO
     Route: 048
     Dates: end: 20060315
  3. LOXAPINE SUCCINATE [Suspect]
     Dosage: 110 MG QD PO
     Route: 048
     Dates: end: 20060315
  4. ATARAX [Suspect]
     Dates: end: 20060315
  5. OXAZEPAM [Suspect]
     Dosage: 50 MG QD PO
     Route: 048
     Dates: end: 20060315
  6. LAMICTAL [Suspect]
     Dosage: 100 MG QD PO
     Route: 048
     Dates: end: 20060315
  7. CERAZETTE (DESOGESTREL) [Concomitant]
  8. MOTILIUM [Concomitant]
  9. VALIUM [Concomitant]
  10. MEPRONIZINE [Concomitant]
  11. DUPHALAC [Concomitant]

REACTIONS (19)
  - ANOREXIA [None]
  - ASTHENIA [None]
  - C-REACTIVE PROTEIN INCREASED [None]
  - CARDIAC FAILURE [None]
  - CARDIOMYOPATHY ACUTE [None]
  - COMA [None]
  - ELECTROCARDIOGRAM QRS COMPLEX PROLONGED [None]
  - HAEMOGLOBIN DECREASED [None]
  - HEPATIC FAILURE [None]
  - HEPATIC INFARCTION [None]
  - HEPATITIS ACUTE [None]
  - HYPERKALAEMIA [None]
  - HYPONATRAEMIA [None]
  - LACTIC ACIDOSIS [None]
  - MIOSIS [None]
  - MULTIPLE DRUG OVERDOSE [None]
  - MYOCARDITIS [None]
  - PNEUMONIA ASPIRATION [None]
  - WHITE BLOOD CELL COUNT INCREASED [None]
